FAERS Safety Report 7431722-6 (Version None)
Quarter: 2011Q2

REPORT INFORMATION
  Report Type: 
  Country: None (occurrence: None)
  Receive Date: 20110422
  Receipt Date: 20110414
  Transmission Date: 20111010
  Serious: Yes (Death, Hospitalization)
  Sender: FDA-Public Use
  Company Number: US-BIOGENIDEC-2011BI007069

PATIENT
  Age: 59 Year
  Sex: Female

DRUGS (4)
  1. EFFEXOR [Concomitant]
  2. XANAX [Concomitant]
  3. AVONEX [Suspect]
     Indication: MULTIPLE SCLEROSIS
     Route: 030
     Dates: start: 20000428
  4. AMITRIPTYLINE HCL [Concomitant]

REACTIONS (3)
  - SUBDURAL HAEMATOMA [None]
  - FALL [None]
  - ANEURYSM [None]
